FAERS Safety Report 23921347 (Version 2)
Quarter: 2024Q2

REPORT INFORMATION
  Report Type: Spontaneous
  Country: US (occurrence: US)
  Receive Date: 20240530
  Receipt Date: 20240617
  Transmission Date: 20240715
  Serious: No
  Sender: FDA-Public Use
  Company Number: US-Calliditas-2024CAL00823

PATIENT
  Age: 26 Year
  Sex: Male

DRUGS (6)
  1. TARPEYO [Suspect]
     Active Substance: BUDESONIDE
     Indication: IgA nephropathy
     Route: 048
     Dates: start: 20240328
  2. VICTOZA [Concomitant]
     Active Substance: LIRAGLUTIDE
  3. FARXIGA [Concomitant]
     Active Substance: DAPAGLIFLOZIN PROPANEDIOL
  4. ULORIC [Concomitant]
     Active Substance: FEBUXOSTAT
  5. COZAAR [Concomitant]
     Active Substance: LOSARTAN POTASSIUM
  6. FINERENONE [Concomitant]
     Active Substance: FINERENONE

REACTIONS (1)
  - Rash [Recovered/Resolved]

NARRATIVE: CASE EVENT DATE: 20240406
